FAERS Safety Report 6938034-5 (Version None)
Quarter: 2010Q3

REPORT INFORMATION
  Report Type: 
  Country: None (occurrence: None)
  Receive Date: 20100823
  Receipt Date: 20100823
  Transmission Date: 20110219
  Serious: Yes (Hospitalization)
  Sender: FDA-Public Use
  Company Number: None

PATIENT
  Age: 78 Year
  Sex: Female
  Weight: 117.4816 kg

DRUGS (1)
  1. HUMIRA [Suspect]
     Indication: RHEUMATOID ARTHRITIS
     Dosage: 40 MG WEEKLY SQ
     Route: 058

REACTIONS (4)
  - DYSPNOEA [None]
  - EJECTION FRACTION DECREASED [None]
  - MYOGLOBIN BLOOD INCREASED [None]
  - TROPONIN INCREASED [None]
